FAERS Safety Report 11944788 (Version 3)
Quarter: 2020Q1

REPORT INFORMATION
  Report Type: Report from Study
  Country: CO (occurrence: CO)
  Receive Date: 20160125
  Receipt Date: 20200114
  Transmission Date: 20200409
  Serious: Yes (Death, Hospitalization)
  Sender: FDA-Public Use
  Company Number: CO-JNJFOC-20160114717

PATIENT
  Age: 73 Year
  Sex: Male
  Weight: 60 kg

DRUGS (2)
  1. PREDNISOLONE. [Concomitant]
     Active Substance: PREDNISOLONE
     Indication: PROSTATE CANCER METASTATIC
     Route: 048
     Dates: start: 20150825
  2. ZYTIGA [Suspect]
     Active Substance: ABIRATERONE ACETATE
     Indication: PROSTATE CANCER METASTATIC
     Route: 048
     Dates: start: 20150825

REACTIONS (3)
  - Pneumonia [Recovered/Resolved]
  - Condition aggravated [Fatal]
  - Decreased appetite [Fatal]

NARRATIVE: CASE EVENT DATE: 20160102
